FAERS Safety Report 9034529 (Version 1)
Quarter: 2013Q1

REPORT INFORMATION
  Report Type: Spontaneous
  Country: US (occurrence: US)
  Receive Date: 20130128
  Receipt Date: 20130128
  Transmission Date: 20140127
  Serious: Yes (Other)
  Sender: FDA-Public Use
  Company Number: US-BAYER-2013-008891

PATIENT
  Age: 69 Year
  Sex: Female
  Weight: 81 kg

DRUGS (8)
  1. ALKA-SELTZER PLUS [Suspect]
     Indication: INFLUENZA
     Dosage: 1 DOSE, ONCE
     Route: 048
     Dates: start: 20130117, end: 20130117
  2. ANTIHYPERTENSIVES [Concomitant]
  3. ANTI-DIABETICS [Concomitant]
  4. BAYER ASPIRIN REGIMEN ADULT LOW STRENGTH [Concomitant]
     Indication: ISCHAEMIC HEART DISEASE PROPHYLAXIS
     Dosage: UNK UNK, QD
     Route: 048
  5. BAYER ASPIRIN REGIMEN ADULT LOW STRENGTH [Concomitant]
     Indication: ISCHAEMIC HEART DISEASE PROPHYLAXIS
     Dosage: UNK, QOD
  6. METFORMIN [Concomitant]
  7. LISINOPRIL [Concomitant]
  8. PEPTO BISMOL [Concomitant]
     Indication: DIARRHOEA

REACTIONS (2)
  - Faeces discoloured [Recovered/Resolved]
  - Tongue discolouration [Not Recovered/Not Resolved]
